FAERS Safety Report 8844915 (Version 2)
Quarter: 2012Q4

REPORT INFORMATION
  Report Type: 
  Country: JP (occurrence: JP)
  Receive Date: 20121017
  Receipt Date: 20121112
  Transmission Date: 20130627
  Serious: Yes (Other)
  Sender: FDA-Public Use
  Company Number: JP-PFIZER INC-2012250998

PATIENT
  Sex: Female

DRUGS (2)
  1. PREMARIN [Suspect]
     Indication: HORMONE REPLACEMENT THERAPY
     Dosage: 0.625 mg, daily
  2. PREMARIN [Suspect]
     Indication: CLIMACTERIC DISTURBANCE

REACTIONS (2)
  - Hepatic steatosis [Recovered/Resolved]
  - Hepatic function abnormal [Recovered/Resolved]
